FAERS Safety Report 9210042 (Version 1)
Quarter: 2013Q2

REPORT INFORMATION
  Report Type: Spontaneous
  Country: US (occurrence: US)
  Receive Date: 20130404
  Receipt Date: 20130404
  Transmission Date: 20140414
  Serious: No
  Sender: FDA-Public Use
  Company Number: US-ASTELLAS-2013US001452

PATIENT
  Sex: Female
  Weight: 48 kg

DRUGS (1)
  1. MYRBETRIQ [Suspect]
     Indication: PRODUCT USED FOR UNKNOWN INDICATION
     Dosage: TWO 25 MG SAMPLES, UID/QD
     Route: 048

REACTIONS (1)
  - Intentional drug misuse [Unknown]
